FAERS Safety Report 15239830 (Version 1)
Quarter: 2018Q3

REPORT INFORMATION
  Report Type: Spontaneous
  Country: US (occurrence: US)
  Receive Date: 20180710
  Receipt Date: 20180710
  Transmission Date: 20181010
  Serious: Yes (Other)
  Sender: FDA-Public Use
  Company Number: None

PATIENT
  Age: 73 Year
  Sex: Male
  Weight: 84.6 kg

DRUGS (14)
  1. OMEPRAZOLE. [Concomitant]
     Active Substance: OMEPRAZOLE
  2. OXYCONTIN [Concomitant]
     Active Substance: OXYCODONE HYDROCHLORIDE
  3. CELEXA [Concomitant]
     Active Substance: CITALOPRAM HYDROBROMIDE
  4. LOPERAMIDE [Concomitant]
     Active Substance: LOPERAMIDE
  5. TEMAZEPAM. [Concomitant]
     Active Substance: TEMAZEPAM
  6. INLYTA [Suspect]
     Active Substance: AXITINIB
     Indication: RENAL CANCER
     Route: 048
     Dates: start: 20180105
  7. LORATADINE. [Concomitant]
     Active Substance: LORATADINE
  8. OXYCODONE [Concomitant]
     Active Substance: OXYCODONE
  9. STOOL SOFTENER (DOCUSATE) [Concomitant]
     Active Substance: DOCUSATE
  10. FINASTERIDE. [Concomitant]
     Active Substance: FINASTERIDE
  11. LORAZEPAM. [Concomitant]
     Active Substance: LORAZEPAM
  12. TAMSULOSIN [Concomitant]
     Active Substance: TAMSULOSIN
  13. CARVEDILOL. [Concomitant]
     Active Substance: CARVEDILOL
  14. ONDANSETRON [Concomitant]
     Active Substance: ONDANSETRON

REACTIONS (1)
  - Urinary tract infection [None]
